FAERS Safety Report 6057923-X (Version None)
Quarter: 2009Q1

REPORT INFORMATION
  Report Type: 
  Country: None (occurrence: None)
  Receive Date: 20090129
  Receipt Date: 20090114
  Transmission Date: 20090719
  Serious: Yes (Hospitalization, Other)
  Sender: FDA-Public Use
  Company Number: AU-MERCK-0811AUS00308

PATIENT
  Age: 83 Year
  Sex: Female
  Weight: 72 kg

DRUGS (9)
  1. FOSAMAX [Suspect]
     Indication: OSTEOPOROSIS
     Route: 048
     Dates: start: 20040216, end: 20081205
  2. PERINDOPRIL ARGININE [Concomitant]
     Indication: HYPERTENSION
     Route: 048
  3. LATANOPROST [Concomitant]
     Indication: GLAUCOMA
     Route: 065
  4. ASPIRIN [Concomitant]
     Route: 048
  5. TEMAZEPAM [Concomitant]
     Route: 065
  6. ESOMEPRAZOLE MAGNESIUM [Concomitant]
     Indication: GASTROOESOPHAGEAL REFLUX DISEASE
     Route: 048
  7. ATORVASTATIN CALCIUM [Concomitant]
     Indication: BLOOD CHOLESTEROL INCREASED
     Route: 065
  8. ACETAMINOPHEN [Concomitant]
     Indication: ARTHRITIS
     Route: 048
  9. TELMISARTAN [Concomitant]
     Route: 065

REACTIONS (1)
  - BLOOD PRESSURE DECREASED [None]
